FAERS Safety Report 5629826-3 (Version None)
Quarter: 2008Q1

REPORT INFORMATION
  Report Type: 
  Country: None (occurrence: None)
  Receive Date: 20080218
  Receipt Date: 20080211
  Transmission Date: 20080703
  Serious: Yes (Death, Hospitalization)
  Sender: FDA-Public Use
  Company Number: PHNU2008DE00523

PATIENT
  Age: 21 Year
  Sex: Female
  Weight: 40 kg

DRUGS (32)
  1. SANDIMMUNE [Suspect]
     Indication: LUNG TRANSPLANT
     Dosage: 25 MG DAILY
     Route: 042
     Dates: start: 20061102, end: 20061104
  2. CELLCEPT [Concomitant]
     Indication: LUNG TRANSPLANT
     Dates: start: 20071101
  3. PREDNISOLONE [Concomitant]
     Indication: LUNG TRANSPLANT
     Dosage: 25 MG DAILY
     Route: 042
     Dates: start: 20061102
  4. CYTOMEGALOVIRUS IMMUNE GLOBULIN [Concomitant]
     Dates: start: 20061102
  5. COLISTIN SULFATE [Concomitant]
     Dates: start: 20061103
  6. JONOSTERIL [Concomitant]
     Dates: start: 20061102
  7. GELAFUSAL-N IN RINGERACETAT [Concomitant]
     Dates: start: 20061102
  8. CALCIUM [Concomitant]
     Dates: start: 20061102
  9. DESMOPRESSIN [Concomitant]
     Dates: start: 20061102
  10. METOPROLOL TARTRATE [Concomitant]
     Dates: start: 20061103
  11. NADROPARIN [Concomitant]
     Dates: start: 20061103
  12. XIPAMIDE [Concomitant]
  13. PROPOFOL [Suspect]
     Indication: SEDATION
     Dosage: 200 MG/H, UNK
     Route: 042
     Dates: start: 20061102, end: 20061104
  14. CEFTAZIDIME [Concomitant]
     Dosage: 2 G, TID
     Route: 042
     Dates: start: 20061102
  15. TOBRAMYCIN [Interacting]
     Dosage: 160 MG DAILY
     Route: 042
     Dates: start: 20061102, end: 20061104
  16. FLUCLOXACILLIN [Concomitant]
     Dosage: 2 G, TID
     Route: 042
     Dates: start: 20061102
  17. NOREPINEPHRINE [Concomitant]
     Dates: start: 20061102
  18. NITROGLYCERIN [Concomitant]
     Dates: start: 20061102
  19. MILRINONE [Concomitant]
     Dates: start: 20061102
  20. ELECTROLYTES NOS [Concomitant]
     Dates: start: 20061102
  21. FRESH FROZEN PLASMA [Concomitant]
     Dates: start: 20061102
  22. INSULIN [Concomitant]
     Dates: start: 20061102
  23. POTASSIUM CHLORIDE [Concomitant]
     Dates: start: 20061102
  24. APROTININ [Concomitant]
     Dates: start: 20061102
  25. FUROSEMIDE [Concomitant]
     Dates: start: 20061104
  26. MYCOPHENOLATE MOFETIL [Concomitant]
     Dates: start: 20061103
  27. HEPARIN [Concomitant]
     Dates: start: 20061105
  28. TRIS [Concomitant]
     Dates: start: 20061106
  29. SODIUM CHLORIDE [Concomitant]
     Dates: start: 20061104
  30. GLUCOSE [Concomitant]
     Dates: start: 20061106
  31. MAGNESIUM SULFATE [Concomitant]
     Dates: start: 20061106
  32. VITAMINS NOS [Concomitant]
     Dates: start: 20061106

REACTIONS (12)
  - BLOOD CREATINE PHOSPHOKINASE INCREASED [None]
  - CARDIAC FAILURE [None]
  - DIALYSIS [None]
  - DRUG INTERACTION [None]
  - MYOGLOBIN BLOOD INCREASED [None]
  - POST PROCEDURAL HAEMORRHAGE [None]
  - PULMONARY HAEMORRHAGE [None]
  - RENAL FAILURE [None]
  - RHABDOMYOLYSIS [None]
  - THORACOTOMY [None]
  - TOXIC EPIDERMAL NECROLYSIS [None]
  - TROPONIN I INCREASED [None]
